FAERS Safety Report 15009807 (Version 1)
Quarter: 2018Q2

REPORT INFORMATION
  Report Type: Spontaneous
  Country: IT (occurrence: IT)
  Receive Date: 20180614
  Receipt Date: 20180614
  Transmission Date: 20180711
  Serious: Yes (Hospitalization)
  Sender: FDA-Public Use
  Company Number: IT-ACCORD-068161

PATIENT
  Age: 37 Year
  Sex: Female

DRUGS (1)
  1. CYANOCOBALAMIN. [Suspect]
     Active Substance: CYANOCOBALAMIN
     Indication: ASTHENIA
     Route: 030

REACTIONS (4)
  - Vitamin B12 increased [Recovered/Resolved]
  - Dermatitis acneiform [Recovered/Resolved]
  - Staphylococcal infection [Recovered/Resolved]
  - Eosinophilic pustular folliculitis [Recovered/Resolved]
